FAERS Safety Report 18334984 (Version 6)
Quarter: 2020Q4

REPORT INFORMATION
  Report Type: Report from Study
  Country: US (occurrence: US)
  Receive Date: 20201001
  Receipt Date: 20201223
  Transmission Date: 20210113
  Serious: Yes (Hospitalization)
  Sender: FDA-Public Use
  Company Number: US-PFIZER INC-2020372896

PATIENT
  Age: 44 Year
  Sex: Female
  Weight: 97.73 kg

DRUGS (6)
  1. PF-06826647. [Suspect]
     Active Substance: PF-06826647
     Indication: PSORIASIS
     Dosage: 200MG
     Route: 048
     Dates: start: 20191010
  2. ATIVAN [Concomitant]
     Active Substance: LORAZEPAM
     Indication: ANXIETY
     Dosage: 0.5 MG
     Route: 048
     Dates: start: 2017
  3. PF-06826647. [Suspect]
     Active Substance: PF-06826647
     Dosage: 200 MG
     Dates: start: 20200618, end: 20200702
  4. GABAPENTIN. [Concomitant]
     Active Substance: GABAPENTIN
     Indication: FIBROMYALGIA
     Dosage: 300 MG
     Route: 048
     Dates: start: 201804
  5. ZANAFLEX [Concomitant]
     Active Substance: TIZANIDINE HYDROCHLORIDE
     Indication: FIBROMYALGIA
     Dosage: 2 MG
     Route: 048
     Dates: start: 201804
  6. METHIMAZOLE. [Suspect]
     Active Substance: METHIMAZOLE
     Indication: HYPERTHYROIDISM
     Dosage: 5 MG
     Route: 048
     Dates: start: 2017, end: 20200502

REACTIONS (1)
  - Chest pain [Recovered/Resolved]

NARRATIVE: CASE EVENT DATE: 20200702
